FAERS Safety Report 4477684-5 (Version None)
Quarter: 2004Q4

REPORT INFORMATION
  Report Type: 
  Country: None (occurrence: None)
  Receive Date: 20041013
  Receipt Date: 20040927
  Transmission Date: 20050328
  Serious: Yes (Hospitalization)
  Sender: FDA-Public Use
  Company Number: GBS040615024

PATIENT
  Age: 65 Year
  Sex: Male
  Weight: 73 kg

DRUGS (1)
  1. CIALIS [Suspect]
     Indication: ERECTILE DYSFUNCTION
     Dosage: 10 MG
     Dates: start: 20040515, end: 20040515

REACTIONS (13)
  - BLISTER [None]
  - DERMATITIS EXFOLIATIVE [None]
  - INFLUENZA LIKE ILLNESS [None]
  - LETHARGY [None]
  - OEDEMA [None]
  - PEMPHIGOID [None]
  - RASH ERYTHEMATOUS [None]
  - RASH PRURITIC [None]
  - SKIN DISCOLOURATION [None]
  - SKIN HYPERTROPHY [None]
  - SKIN REACTION [None]
  - STEVENS-JOHNSON SYNDROME [None]
  - SWELLING FACE [None]
